FAERS Safety Report 8239919-2 (Version None)
Quarter: 2012Q1

REPORT INFORMATION
  Report Type: 
  Country: None (occurrence: None)
  Receive Date: 20120328
  Receipt Date: 20120320
  Transmission Date: 20120608
  Serious: Yes (Other)
  Sender: FDA-Public Use
  Company Number: US-JNJFOC-20120310919

PATIENT
  Age: 64 Year
  Sex: Male

DRUGS (3)
  1. CELEBREX [Concomitant]
     Indication: BACK PAIN
     Dosage: FOR ABOUT THREE YEARS
     Route: 065
  2. SUDAFED 12 HOUR [Suspect]
     Indication: SINUS HEADACHE
     Dosage: FOR ABOUT A YEAR
     Route: 048
     Dates: start: 20110101
  3. SUDAFED 12 HOUR [Suspect]
     Dosage: FOR ABOUT A YEAR
     Route: 048
     Dates: start: 20110101

REACTIONS (6)
  - KIDNEY INFECTION [None]
  - PYREXIA [None]
  - CHILLS [None]
  - PROSTATITIS [None]
  - PYELONEPHRITIS [None]
  - FATIGUE [None]
